FAERS Safety Report 8761685 (Version 1)
Quarter: 2012Q4

REPORT INFORMATION
  Report Type: Spontaneous
  Country: US (occurrence: None)
  Receive Date: 20120830
  Receipt Date: 20120830
  Transmission Date: 20130627
  Serious: Yes (Life-Threatening, Disabling, Other)
  Sender: FDA-Public Use
  Company Number: None

PATIENT
  Age: 38 Year
  Sex: Male
  Weight: 90.72 kg

DRUGS (1)
  1. PRAVASTATIN [Suspect]
     Indication: BLOOD CHOLESTEROL ABNORMAL
     Route: 048
     Dates: start: 20111213, end: 20120214

REACTIONS (7)
  - Dermatomyositis [None]
  - Back pain [None]
  - Arthralgia [None]
  - Dysphonia [None]
  - Visual impairment [None]
  - Fatigue [None]
  - Asthenia [None]
